FAERS Safety Report 6564773-4 (Version None)
Quarter: 2010Q1

REPORT INFORMATION
  Report Type: 
  Country: None (occurrence: None)
  Receive Date: 20100201
  Receipt Date: 20100125
  Transmission Date: 20100710
  Serious: Yes (Other)
  Sender: FDA-Public Use
  Company Number: US-BAYER-201013503GPV

PATIENT
  Sex: Male
  Weight: 77 kg

DRUGS (7)
  1. SORAFENIB [Suspect]
     Indication: PROSTATE CANCER
     Dates: start: 20091228, end: 20100118
  2. RDEA119 [Suspect]
     Indication: PROSTATE CANCER
     Dates: start: 20091228, end: 20100118
  3. ACTOS [Concomitant]
     Indication: DIABETES MELLITUS
     Route: 048
  4. AMLODIPINE [Concomitant]
     Indication: HYPERTENSION
     Route: 048
  5. DIOVAN [Concomitant]
     Indication: HYPERTENSION
     Dosage: 80-12.5 MG
     Route: 048
  6. GLIPIZIDE [Concomitant]
     Indication: DIABETES MELLITUS
     Dosage: 5-500 MG
     Route: 048
  7. PRAVASTATIN [Concomitant]
     Indication: HYPERLIPIDAEMIA
     Route: 048

REACTIONS (1)
  - LEFT VENTRICULAR DYSFUNCTION [None]
